FAERS Safety Report 6210226-2 (Version None)
Quarter: 2009Q2

REPORT INFORMATION
  Report Type: 
  Country: None (occurrence: None)
  Receive Date: 20090601
  Receipt Date: 20090506
  Transmission Date: 20091009
  Serious: Yes (Hospitalization)
  Sender: FDA-Public Use
  Company Number: BF-MERCK-0905USA01399

PATIENT

DRUGS (2)
  1. STROMECTOL [Suspect]
     Route: 048
  2. ALBENDAZOLE [Suspect]
     Route: 065

REACTIONS (2)
  - EPILEPSY [None]
  - SYNCOPE [None]
